FAERS Safety Report 5391564-2 (Version None)
Quarter: 2007Q3

REPORT INFORMATION
  Report Type: 
  Country: None (occurrence: None)
  Receive Date: 20070719
  Receipt Date: 20070717
  Transmission Date: 20080115
  Serious: Yes (Hospitalization)
  Sender: FDA-Public Use
  Company Number: HQWYE091717JUL07

PATIENT
  Age: 71 Year
  Sex: Male
  Weight: 50 kg

DRUGS (8)
  1. AMIODARONE HCL [Suspect]
     Indication: ARRHYTHMIA
     Route: 048
  2. AMIODARONE HCL [Suspect]
     Indication: HYPERTENSION
  3. AMIODARONE HCL [Suspect]
     Indication: MYOCARDIAL ISCHAEMIA
  4. NORVASC [Concomitant]
     Indication: ARRHYTHMIA
     Dosage: NOT PROVIDED
     Route: 048
  5. NORVASC [Concomitant]
     Indication: HYPERTENSION
  6. NORVASC [Concomitant]
     Indication: MYOCARDIAL ISCHAEMIA
  7. ACETYLSALICYLIC ACID SRT [Concomitant]
     Indication: CEREBRAL INFARCTION
     Dosage: NOT PROVIDED
     Route: 048
  8. PLAVIX [Concomitant]
     Indication: CEREBRAL INFARCTION
     Dosage: NOT PROVIDED
     Route: 048

REACTIONS (11)
  - AGEUSIA [None]
  - ANOREXIA [None]
  - GASTROINTESTINAL DISORDER [None]
  - HYPERTHYROIDISM [None]
  - HYPOSMIA [None]
  - MUSCULAR WEAKNESS [None]
  - NAUSEA [None]
  - PRODUCTIVE COUGH [None]
  - PULMONARY TOXICITY [None]
  - VOMITING [None]
  - WEIGHT DECREASED [None]
